FAERS Safety Report 10189383 (Version 1)
Quarter: 2014Q2

REPORT INFORMATION
  Report Type: Spontaneous
  Country: ES (occurrence: ES)
  Receive Date: 20140522
  Receipt Date: 20140522
  Transmission Date: 20141212
  Serious: Yes (Other)
  Sender: FDA-Public Use
  Company Number: ES-TEVA-481746ISR

PATIENT
  Age: 58 Year
  Sex: Female

DRUGS (1)
  1. TRISENOX 1MG/ML CONCENTRATE FOR SOLUTION FOR INFUSION [Suspect]
     Indication: ACUTE LEUKAEMIA
     Dosage: 7 MILLIGRAM DAILY;
     Route: 042
     Dates: start: 20140324, end: 20140421

REACTIONS (1)
  - Pneumonitis [Recovering/Resolving]
